FAERS Safety Report 18467689 (Version 1)
Quarter: 2020Q4

REPORT INFORMATION
  Report Type: Spontaneous
  Country: US (occurrence: US)
  Receive Date: 20201104
  Receipt Date: 20201104
  Transmission Date: 20210114
  Serious: Yes (Hospitalization)
  Sender: FDA-Public Use
  Company Number: None

PATIENT
  Age: 69 Year
  Sex: Male
  Weight: 91.2 kg

DRUGS (1)
  1. KYMRIAH [Suspect]
     Active Substance: TISAGENLECLEUCEL
     Indication: DIFFUSE LARGE B-CELL LYMPHOMA
     Dosage: ?          OTHER FREQUENCY:ONCE;?
     Route: 042
     Dates: start: 20200825, end: 20200825

REACTIONS (12)
  - Fall [None]
  - Asthenia [None]
  - Hypotension [None]
  - Tachycardia [None]
  - Inappropriate antidiuretic hormone secretion [None]
  - Cognitive disorder [None]
  - Clostridium difficile colitis [None]
  - Blindness unilateral [None]
  - Ataxia [None]
  - Deafness [None]
  - Pyrexia [None]
  - Agitation [None]

NARRATIVE: CASE EVENT DATE: 20200825
